FAERS Safety Report 10219103 (Version 3)
Quarter: 2014Q3

REPORT INFORMATION
  Report Type: Spontaneous
  Country: US (occurrence: US)
  Receive Date: 20140605
  Receipt Date: 20140813
  Transmission Date: 20150326
  Serious: Yes (Death, Hospitalization, Other)
  Sender: FDA-Public Use
  Company Number: US-009507513-1406USA001919

PATIENT
  Sex: Male
  Weight: 113.97 kg

DRUGS (1)
  1. JANUVIA [Suspect]
     Active Substance: SITAGLIPTIN PHOSPHATE
     Indication: TYPE 2 DIABETES MELLITUS
     Dosage: 50 MG, QD
     Route: 048
     Dates: start: 20111121, end: 201301

REACTIONS (32)
  - Hepatic infection [Unknown]
  - Liver abscess [Unknown]
  - Depression [Unknown]
  - Abdominal lymphadenopathy [Unknown]
  - Biliary dilatation [Unknown]
  - Diastasis recti abdominis [Unknown]
  - Arthritis [Unknown]
  - Renal failure acute [Unknown]
  - Emotional distress [Unknown]
  - Pain [Unknown]
  - Duodenal obstruction [Unknown]
  - Delirium [Unknown]
  - Hypertension [Unknown]
  - Diabetic foot [Unknown]
  - Atelectasis [Unknown]
  - Back pain [Unknown]
  - Pancreatic carcinoma metastatic [Fatal]
  - Bile duct stent insertion [Unknown]
  - Oedema [Unknown]
  - Aspiration [Unknown]
  - Bile duct stent insertion [Unknown]
  - Insomnia [Unknown]
  - Drain placement [Unknown]
  - Blood cholesterol increased [Unknown]
  - Pneumonia [Unknown]
  - Cardiomegaly [Unknown]
  - Metastases to liver [Unknown]
  - Toxic encephalopathy [Unknown]
  - Anaemia [Unknown]
  - Visual acuity reduced [Unknown]
  - Anxiety [Unknown]
  - Bile duct stenosis [Unknown]

NARRATIVE: CASE EVENT DATE: 2012
